FAERS Safety Report 18576091 (Version 1)
Quarter: 2020Q4

REPORT INFORMATION
  Report Type: Spontaneous
  Country: JP (occurrence: JP)
  Receive Date: 20201203
  Receipt Date: 20201203
  Transmission Date: 20210114
  Serious: Yes (Other)
  Sender: FDA-Public Use
  Company Number: JP-LUPIN PHARMACEUTICALS INC.-2020-09474

PATIENT
  Age: 66 Year
  Sex: Female

DRUGS (14)
  1. AMANTADINE. [Suspect]
     Active Substance: AMANTADINE HYDROCHLORIDE
     Indication: APRAXIA
     Dosage: 200 MILLIGRAM, QD
     Route: 065
  2. LEVODOPA [Concomitant]
     Active Substance: LEVODOPA
     Dosage: 10 MILLIGRAM
     Route: 042
  3. LEVODOPA [Concomitant]
     Active Substance: LEVODOPA
     Indication: PARKINSON^S DISEASE
     Dosage: INITIAL DOSE NOT STATED
     Route: 065
  4. LEVODOPA [Concomitant]
     Active Substance: LEVODOPA
     Dosage: 60 MILLIGRAM
     Route: 042
  5. DULOXETINE. [Suspect]
     Active Substance: DULOXETINE
     Indication: APRAXIA
     Dosage: 20 MILLIGRAM, QD
     Route: 065
  6. SALINEX [SODIUM CHLORIDE] [Concomitant]
     Active Substance: SODIUM CHLORIDE
     Indication: VEHICLE SOLUTION USE
     Dosage: 100 MILLILITER,INFUSED OVER 30 MINUTES
     Route: 042
  7. APOMORPHINE [Concomitant]
     Active Substance: APOMORPHINE
     Indication: PROPHYLAXIS
     Dosage: UNK
     Route: 065
  8. LEVODOPA [Concomitant]
     Active Substance: LEVODOPA
     Dosage: 650 MILLIGRAM, QD,EIGHT TIMES
     Route: 065
  9. LEVODOPA [Concomitant]
     Active Substance: LEVODOPA
     Dosage: 25MG IN SODIUM CHLORIDE [SALINE] 100 ML SOLUTION INFUSED OVER 30 MINUTES
     Route: 042
  10. ZONISAMIDE. [Concomitant]
     Active Substance: ZONISAMIDE
     Indication: PARKINSON^S DISEASE
     Dosage: 50 MILLIGRAM, QD
     Route: 065
  11. ROPINIROLE. [Concomitant]
     Active Substance: ROPINIROLE
     Indication: PARKINSON^S DISEASE
     Dosage: 12 MILLIGRAM, QD
     Route: 065
  12. AMANTADINE. [Suspect]
     Active Substance: AMANTADINE HYDROCHLORIDE
     Indication: DYSKINESIA
  13. LEVODOPA/CARBIDOPA [Concomitant]
     Active Substance: CARBIDOPA\LEVODOPA
     Indication: PARKINSON^S DISEASE
     Dosage: FORMULATION: INTESTINAL GEL INFUSION,INTRAJEJUNAL
     Route: 065
  14. ROPINIROLE. [Concomitant]
     Active Substance: ROPINIROLE
     Indication: PROPHYLAXIS

REACTIONS (1)
  - Drug ineffective [Unknown]
